FAERS Safety Report 4283787-0 (Version None)
Quarter: 2004Q1

REPORT INFORMATION
  Report Type: 
  Country: None (occurrence: None)
  Receive Date: 20040115
  Receipt Date: 20030408
  Transmission Date: 20041129
  Serious: Yes (Other)
  Sender: FDA-Public Use
  Company Number: NSADSS2002040408

PATIENT
  Age: 35 Year
  Sex: Male
  Weight: 70.7611 kg

DRUGS (10)
  1. DOXIL [Suspect]
     Indication: KAPOSI'S SARCOMA
     Dates: start: 20020819, end: 20021016
  2. PROCRIT (INJECTION) ERYTHROPOIETIN [Concomitant]
  3. ZIDOVUDINE [Concomitant]
  4. LAMIVUDINE (LAMIVUDINE) [Concomitant]
  5. SUSTIVA [Concomitant]
  6. ATENOLOL [Concomitant]
  7. MONOPRIL [Concomitant]
  8. RITONEX (RITUXIMAB) [Concomitant]
  9. ONDANSETRON HCL [Concomitant]
  10. DECADRON [Concomitant]

REACTIONS (1)
  - RENAL FAILURE CHRONIC [None]
